FAERS Safety Report 19675115 (Version 1)
Quarter: 2021Q3

REPORT INFORMATION
  Report Type: Spontaneous
  Country: US (occurrence: US)
  Receive Date: 20210809
  Receipt Date: 20210809
  Transmission Date: 20211014
  Serious: No
  Sender: FDA-Public Use
  Company Number: US-ROCHE-2797659

PATIENT
  Age: 59 Year
  Sex: Female
  Weight: 54.03 kg

DRUGS (3)
  1. BONIVA [Suspect]
     Active Substance: IBANDRONATE SODIUM
     Indication: OSTEOPENIA
     Route: 058
     Dates: start: 2018
  2. BONIVA [Suspect]
     Active Substance: IBANDRONATE SODIUM
  3. BONIVA [Suspect]
     Active Substance: IBANDRONATE SODIUM

REACTIONS (3)
  - Product dose omission issue [Unknown]
  - Haemorrhage [Recovered/Resolved]
  - Syringe issue [Unknown]

NARRATIVE: CASE EVENT DATE: 20210315
